FAERS Safety Report 19295591 (Version 1)
Quarter: 2021Q2

REPORT INFORMATION
  Report Type: Spontaneous
  Country: FR (occurrence: FR)
  Receive Date: 20210524
  Receipt Date: 20210524
  Transmission Date: 20210717
  Serious: Yes (Hospitalization)
  Sender: FDA-Public Use
  Company Number: FR-PFIZER INC-2021539095

PATIENT
  Age: 42 Year
  Sex: Male
  Weight: 65 kg

DRUGS (2)
  1. ZAVEDOS [Suspect]
     Active Substance: IDARUBICIN
     Indication: LEUKAEMIA
     Dosage: 12MG/M2 ONCE DAILY, DAY1/CYCLE
     Route: 042
     Dates: start: 20200808, end: 20200909
  2. METHOTREXATE. [Suspect]
     Active Substance: METHOTREXATE
     Indication: LEUKAEMIA
     Dosage: 2500 MG/M2 ONCE DAILY, DAY1
     Route: 042
     Dates: start: 20200708, end: 20200814

REACTIONS (1)
  - Pericarditis [Recovering/Resolving]

NARRATIVE: CASE EVENT DATE: 20201128
